FAERS Safety Report 13413085 (Version 1)
Quarter: 2017Q2

REPORT INFORMATION
  Report Type: Report from Study
  Country: US (occurrence: US)
  Receive Date: 20170407
  Receipt Date: 20170407
  Transmission Date: 20170830
  Serious: Yes (Hospitalization, Disabling)
  Sender: FDA-Public Use
  Company Number: US-ROCHE-1414080

PATIENT
  Age: 56 Year
  Sex: Female
  Weight: 75.5 kg

DRUGS (66)
  1. OCRELIZUMAB [Suspect]
     Active Substance: OCRELIZUMAB
     Indication: PRIMARY PROGRESSIVE MULTIPLE SCLEROSIS
     Route: 042
  2. METHYLPREDNISOLONE. [Concomitant]
     Active Substance: METHYLPREDNISOLONE
     Indication: PREMEDICATION
     Dosage: ADMINISTERED 30-60MINS PRIOR TO BLINDED OCRELIZUMAB INFUSION (FREQUENCY, AS PER PROTOCOL)??ADMINISTE
     Route: 065
     Dates: start: 20120208
  3. ACETAMINOPHEN. [Concomitant]
     Active Substance: ACETAMINOPHEN
     Indication: HEADACHE
     Dosage: ADMINISTERED ALSO: 13/MAY/2015, 15/OCT/2015
     Route: 065
     Dates: start: 20150429
  4. TIZANIDINE. [Concomitant]
     Active Substance: TIZANIDINE
     Indication: MUSCLE SPASTICITY
     Route: 065
     Dates: start: 20130919, end: 20131002
  5. CRANBERRY. [Concomitant]
     Active Substance: CRANBERRY
     Indication: PROPHYLAXIS URINARY TRACT INFECTION
     Route: 065
     Dates: start: 20120920
  6. ZOLPIDEM [Concomitant]
     Active Substance: ZOLPIDEM\ZOLPIDEM TARTRATE
     Indication: INSOMNIA
     Dosage: DOSE: AT BEDTIME IF NEEDED
     Route: 065
  7. TETRACYCLINE [Concomitant]
     Active Substance: TETRACYCLINE
     Indication: URINARY TRACT INFECTION
     Route: 065
     Dates: start: 20150504, end: 20150513
  8. ZYRTEC [Concomitant]
     Active Substance: CETIRIZINE HYDROCHLORIDE
     Route: 065
     Dates: start: 20140105
  9. AUGMENTIN [Concomitant]
     Active Substance: AMOXICILLIN\CLAVULANATE POTASSIUM
     Indication: URINARY TRACT INFECTION
     Route: 065
     Dates: start: 20130702, end: 20130711
  10. OCRELIZUMAB [Suspect]
     Active Substance: OCRELIZUMAB
     Indication: PRIMARY PROGRESSIVE MULTIPLE SCLEROSIS
     Dosage: FREQUENCY: TWO INFUSIONS OF OCRELIZUMAB SEPARATED BY 14 DAYS AT A SCHEDULED INTERVAL OF EVERY 24 WEE
     Route: 042
     Dates: start: 20120208, end: 20151015
  11. BACLOFEN. [Concomitant]
     Active Substance: BACLOFEN
     Indication: MUSCULOSKELETAL STIFFNESS
     Route: 065
     Dates: start: 20130711, end: 20130712
  12. ACETAMINOPHEN. [Concomitant]
     Active Substance: ACETAMINOPHEN
     Indication: PAIN
     Route: 065
     Dates: start: 20160110, end: 20160114
  13. ENOXAPARIN [Concomitant]
     Active Substance: ENOXAPARIN
     Indication: PROPHYLAXIS
     Route: 065
     Dates: start: 20140508, end: 20140603
  14. AMOXICILLIN. [Concomitant]
     Active Substance: AMOXICILLIN
     Route: 065
     Dates: start: 20140626, end: 20140705
  15. TAMSULOSIN HCL [Concomitant]
     Active Substance: TAMSULOSIN
     Indication: URINARY RETENTION
     Route: 065
     Dates: start: 20140808, end: 20150304
  16. FLORASTOR [Concomitant]
     Active Substance: SACCHAROMYCES CEREVISIAE
     Route: 065
  17. TYLENOL [Concomitant]
     Active Substance: ACETAMINOPHEN
     Indication: PYREXIA
  18. ZYRTEC [Concomitant]
     Active Substance: CETIRIZINE HYDROCHLORIDE
     Route: 065
     Dates: start: 20120807
  19. CEPHALEXIN. [Concomitant]
     Active Substance: CEPHALEXIN
     Route: 065
     Dates: start: 20150313, end: 20150316
  20. DIPHENHYDRAMINE. [Concomitant]
     Active Substance: DIPHENHYDRAMINE
     Dosage: ADMINISTERED 30-60MINS PRIOR TO BLINDED OCRELIZUMAB INFUSION (FREQUENCY, AS PER PROTOCOL
     Route: 065
     Dates: start: 20150513
  21. ACETAMINOPHEN. [Concomitant]
     Active Substance: ACETAMINOPHEN
     Indication: PREMEDICATION
     Dosage: ADMINISTERED 30-60MINS PRIOR TO EACH BLINDED OCRELIZUMAB INFUSION (FREQUENCY, AS PER PROTOCOL)?ADMIN
     Route: 065
     Dates: start: 20120208, end: 20141124
  22. TIZANIDINE. [Concomitant]
     Active Substance: TIZANIDINE
     Indication: MUSCULOSKELETAL STIFFNESS
  23. ENOXAPARIN [Concomitant]
     Active Substance: ENOXAPARIN
     Route: 065
     Dates: start: 20131221, end: 20131224
  24. SENOKOT [Concomitant]
     Active Substance: SENNOSIDES
     Indication: CONSTIPATION
     Route: 065
     Dates: start: 20140530
  25. TYLENOL [Concomitant]
     Active Substance: ACETAMINOPHEN
     Indication: PAIN
     Dosage: DOSE: EVERY 4 HOURS AS REQUIRED
     Route: 048
  26. BENADRYL [Concomitant]
     Active Substance: DIPHENHYDRAMINE HYDROCHLORIDE
     Indication: PREMEDICATION
     Route: 065
     Dates: start: 20140106
  27. ZYRTEC [Concomitant]
     Active Substance: CETIRIZINE HYDROCHLORIDE
     Route: 065
     Dates: start: 20130709
  28. ZYRTEC [Concomitant]
     Active Substance: CETIRIZINE HYDROCHLORIDE
     Route: 065
     Dates: start: 20131215
  29. ZYRTEC [Concomitant]
     Active Substance: CETIRIZINE HYDROCHLORIDE
     Route: 065
     Dates: start: 20120221
  30. AMPYRA [Concomitant]
     Active Substance: DALFAMPRIDINE
     Indication: GAIT DISTURBANCE
     Route: 065
     Dates: start: 20110611, end: 20160111
  31. CEPHALEXIN. [Concomitant]
     Active Substance: CEPHALEXIN
     Route: 065
     Dates: start: 20150224, end: 20150226
  32. NORMAL SALINE [Concomitant]
     Active Substance: SODIUM CHLORIDE
     Indication: SYNCOPE
     Route: 065
     Dates: start: 20131221, end: 20131221
  33. FLU SHOT [Concomitant]
     Active Substance: INFLUENZA VIRUS VACCINE
     Indication: ANTIVIRAL PROPHYLAXIS
     Route: 065
     Dates: start: 20150124, end: 20150124
  34. BACTRIM DS [Concomitant]
     Active Substance: SULFAMETHOXAZOLE\TRIMETHOPRIM
     Indication: URINARY TRACT INFECTION
     Route: 048
     Dates: start: 20120613, end: 20120622
  35. ZYRTEC [Concomitant]
     Active Substance: CETIRIZINE HYDROCHLORIDE
     Indication: PREMEDICATION
     Route: 065
     Dates: start: 20120207
  36. ZYRTEC [Concomitant]
     Active Substance: CETIRIZINE HYDROCHLORIDE
     Route: 065
     Dates: start: 20130106
  37. ZYRTEC [Concomitant]
     Active Substance: CETIRIZINE HYDROCHLORIDE
     Route: 065
     Dates: start: 20130626
  38. CLAVULANATE POTASSIUM [Concomitant]
     Active Substance: CLAVULANATE POTASSIUM
     Indication: URINARY TRACT INFECTION
     Route: 065
     Dates: start: 20130923, end: 20131002
  39. FLU SHOT [Concomitant]
     Active Substance: INFLUENZA VIRUS VACCINE
     Route: 065
     Dates: start: 20151026, end: 20151026
  40. NITROFURANTOIN. [Concomitant]
     Active Substance: NITROFURANTOIN
     Indication: URINARY TRACT INFECTION
     Route: 065
     Dates: start: 20131219, end: 20131221
  41. MICONAZOLE. [Concomitant]
     Active Substance: MICONAZOLE
     Indication: DECUBITUS ULCER
     Route: 065
     Dates: start: 20160202
  42. BACLOFEN. [Concomitant]
     Active Substance: BACLOFEN
     Route: 065
     Dates: start: 20130713, end: 20160104
  43. ENOXAPARIN [Concomitant]
     Active Substance: ENOXAPARIN
     Route: 065
     Dates: start: 20160111, end: 20160114
  44. MILK OF MAGNESIA [Concomitant]
     Active Substance: MAGNESIUM HYDROXIDE
     Indication: CONSTIPATION
     Route: 065
     Dates: start: 20140530
  45. AMOXICILLIN. [Concomitant]
     Active Substance: AMOXICILLIN
     Indication: URINARY TRACT INFECTION
     Route: 065
     Dates: start: 20130923, end: 20131002
  46. AMOXICILLIN. [Concomitant]
     Active Substance: AMOXICILLIN
     Route: 065
     Dates: start: 20140603, end: 20140609
  47. FLEXERIL [Concomitant]
     Active Substance: CYCLOBENZAPRINE HYDROCHLORIDE
     Dosage: DOSE: 3 TIMES DAILY IF NEEDED.
     Route: 065
  48. ESTRACE [Concomitant]
     Active Substance: ESTRADIOL
     Indication: VULVOVAGINAL DRYNESS
     Route: 065
     Dates: start: 20140808, end: 20150111
  49. ZYRTEC [Concomitant]
     Active Substance: CETIRIZINE HYDROCHLORIDE
     Route: 065
     Dates: start: 20130120
  50. BUFFERIN (UNITED STATES) [Concomitant]
     Indication: ARTHRALGIA
     Route: 065
     Dates: start: 20131216
  51. SOLU-MEDROL [Concomitant]
     Active Substance: METHYLPREDNISOLONE SODIUM SUCCINATE
     Indication: MULTIPLE SCLEROSIS
     Route: 065
     Dates: start: 20110819, end: 20111227
  52. MACROBID (UNITED STATES) [Concomitant]
     Indication: URINARY TRACT INFECTION
     Route: 048
     Dates: start: 20130923, end: 20131002
  53. ALUMINIUM HYDROXIDE [Concomitant]
     Active Substance: ALUMINUM HYDROXIDE
     Route: 065
  54. COLACE [Concomitant]
     Active Substance: DOCUSATE SODIUM
     Dosage: DOSE: THREE TIMES DAILY AS NEEDED.
     Route: 065
  55. CEPHALEXIN. [Concomitant]
     Active Substance: CEPHALEXIN
     Route: 065
     Dates: start: 20140214, end: 20140220
  56. SULFAMETHOXAZOLE [Concomitant]
     Active Substance: SULFAMETHOXAZOLE
     Indication: URINARY TRACT INFECTION
     Route: 065
     Dates: start: 20130917, end: 20130923
  57. BISACODYL. [Concomitant]
     Active Substance: BISACODYL
     Indication: CONSTIPATION
     Route: 065
     Dates: start: 20160111, end: 20160114
  58. DIPHENHYDRAMINE. [Concomitant]
     Active Substance: DIPHENHYDRAMINE
     Indication: PREMEDICATION
     Dosage: ADMINISTERED 30-60MINS PRIOR TO BLINDED OCRELIZUMAB INFUSION (FREQUENCY, AS PER PROTOCOL)?ADMINISTER
     Route: 065
     Dates: start: 20120208
  59. MILK OF MAGNESIA [Concomitant]
     Active Substance: MAGNESIUM HYDROXIDE
     Route: 065
     Dates: start: 20160110, end: 20160114
  60. ZYRTEC [Concomitant]
     Active Substance: CETIRIZINE HYDROCHLORIDE
     Route: 065
     Dates: start: 20120724
  61. BACLOFEN. [Concomitant]
     Active Substance: BACLOFEN
     Route: 065
     Dates: start: 20160104
  62. CEPHALEXIN. [Concomitant]
     Active Substance: CEPHALEXIN
     Indication: URINARY TRACT INFECTION
     Route: 065
     Dates: start: 20140127, end: 20140205
  63. MACROBID (UNITED STATES) [Concomitant]
     Route: 048
     Dates: start: 20150725, end: 20150803
  64. ASPIRIN. [Concomitant]
     Active Substance: ASPIRIN
     Indication: PAIN
     Route: 065
     Dates: start: 20160110, end: 20160110
  65. NITROFURANTOIN. [Concomitant]
     Active Substance: NITROFURANTOIN
     Route: 065
     Dates: start: 20131224, end: 20131227
  66. DULCOLAX (BISACODYL) [Concomitant]
     Active Substance: BISACODYL
     Indication: CONSTIPATION
     Route: 065
     Dates: start: 20151025, end: 20151106

REACTIONS (11)
  - Pyelonephritis [Recovered/Resolved]
  - Nephrolithiasis [Recovered/Resolved]
  - Urosepsis [Recovered/Resolved]
  - Clostridium difficile colitis [Not Recovered/Not Resolved]
  - Pneumonia [Recovered/Resolved]
  - Muscular weakness [Recovering/Resolving]
  - Urinary tract infection [Recovered/Resolved]
  - Muscular weakness [Recovered/Resolved]
  - Contusion [Recovered/Resolved]
  - Oedema peripheral [Recovered/Resolved]
  - Urosepsis [Recovered/Resolved]

NARRATIVE: CASE EVENT DATE: 20140527
